FAERS Safety Report 10982245 (Version 1)
Quarter: 2015Q2

REPORT INFORMATION
  Report Type: Spontaneous
  Country: US (occurrence: None)
  Receive Date: 20150401
  Receipt Date: 20150401
  Transmission Date: 20150821
  Serious: Yes (Hospitalization)
  Sender: FDA-Public Use
  Company Number: None

PATIENT
  Age: 60 Year
  Sex: Female
  Weight: 56.2 kg

DRUGS (1)
  1. ERIBULIN [Suspect]
     Active Substance: ERIBULIN
     Indication: CERVIX CARCINOMA
     Dosage: 2.1 D1 AND D8 Q 21 DYS
     Route: 042
     Dates: start: 20150218, end: 20150318

REACTIONS (4)
  - Hydronephrosis [None]
  - Radiation proctitis [None]
  - Flank pain [None]
  - Abdominal pain [None]

NARRATIVE: CASE EVENT DATE: 20150329
